FAERS Safety Report 5815450-6 (Version None)
Quarter: 2008Q3

REPORT INFORMATION
  Report Type: 
  Country: None (occurrence: None)
  Receive Date: 20080718
  Receipt Date: 20080714
  Transmission Date: 20090109
  Serious: Yes (Life-Threatening, Hospitalization)
  Sender: FDA-Public Use
  Company Number: TW-PFIZER INC-2008057200

PATIENT
  Sex: Male
  Weight: 84 kg

DRUGS (7)
  1. CAMPTOSAR [Suspect]
     Indication: COLORECTAL CANCER METASTATIC
     Dosage: DAILY DOSE:360MG-FREQ:EVERY 2 WEEKS
     Route: 042
     Dates: start: 20071105, end: 20080528
  2. BLINDED SU11248 (SU011248) [Suspect]
     Indication: COLORECTAL CANCER METASTATIC
     Route: 048
     Dates: start: 20071105, end: 20080630
  3. FLUOROURACIL [Suspect]
     Indication: COLORECTAL CANCER METASTATIC
     Dosage: DAILY DOSE:800MG-FREQ:BOLUS, EVERY 2 WEEKS
     Route: 042
     Dates: start: 20071105, end: 20080528
  4. FLUOROURACIL [Suspect]
     Dosage: DAILY DOSE:4800MG-FREQ:INFUSION, EVERY 2 WEEKS
     Route: 042
     Dates: start: 20071105, end: 20080528
  5. LEUCOVORIN CALCIUM [Suspect]
     Indication: COLORECTAL CANCER METASTATIC
     Dosage: DAILY DOSE:800MG-FREQ:EVERY 2 WEEKS
     Route: 042
     Dates: start: 20071105, end: 20080528
  6. OXALIPLATIN [Concomitant]
     Route: 042
  7. CAPECITABINE [Concomitant]
     Route: 048

REACTIONS (1)
  - HEPATIC FAILURE [None]
